FAERS Safety Report 4674210-2 (Version None)
Quarter: 2005Q2

REPORT INFORMATION
  Report Type: 
  Country: None (occurrence: None)
  Receive Date: 20050524
  Receipt Date: 20050509
  Transmission Date: 20051028
  Serious: Yes (Other)
  Sender: FDA-Public Use
  Company Number: USA041081090

PATIENT
  Sex: Male
  Weight: 97 kg

DRUGS (1)
  1. HUMALOG [Suspect]
     Dosage: 15 U/3 DAY
     Dates: start: 20010101

REACTIONS (6)
  - APHASIA [None]
  - CEREBROVASCULAR ACCIDENT [None]
  - DECREASED ACTIVITY [None]
  - PHARMACEUTICAL PRODUCT COMPLAINT [None]
  - SPEECH DISORDER [None]
  - VERTIGO [None]
